FAERS Safety Report 14841569 (Version 3)
Quarter: 2018Q3

REPORT INFORMATION
  Report Type: Spontaneous
  Country: US (occurrence: US)
  Receive Date: 20180503
  Receipt Date: 20180926
  Transmission Date: 20181010
  Serious: Yes (Life-Threatening, Hospitalization)
  Sender: FDA-Public Use
  Company Number: US-TEVA-2018-US-887735

PATIENT
  Age: 22 Year
  Sex: Female

DRUGS (1)
  1. METFORMIN [Suspect]
     Active Substance: METFORMIN HYDROCHLORIDE
     Indication: INTENTIONAL OVERDOSE
     Route: 048

REACTIONS (23)
  - Delirium [Recovered/Resolved]
  - Electrocardiogram QRS complex prolonged [Recovered/Resolved]
  - Hyperglycaemia [Recovered/Resolved]
  - Tachypnoea [Recovered/Resolved]
  - Hypotension [Recovered/Resolved]
  - Lactic acidosis [Recovered/Resolved]
  - Flushing [Recovered/Resolved]
  - Electrocardiogram QT prolonged [Recovered/Resolved]
  - Mydriasis [Recovered/Resolved]
  - Tachycardia [Recovered/Resolved]
  - Unresponsive to stimuli [Recovered/Resolved]
  - Intentional overdose [Recovered/Resolved]
  - Anhidrosis [Recovered/Resolved]
  - Lethargy [Recovered/Resolved]
  - Mental status changes [Recovered/Resolved]
  - Vasoplegia syndrome [Recovered/Resolved]
  - Metabolic acidosis [Recovered/Resolved]
  - Hypoglycaemia [Recovered/Resolved]
  - Nausea [Recovered/Resolved]
  - Gastrointestinal sounds abnormal [Recovered/Resolved]
  - Hypertension [Recovered/Resolved]
  - Hypothermia [Recovered/Resolved]
  - Condition aggravated [Recovered/Resolved]
